FAERS Safety Report 10103421 (Version 2)
Quarter: 2014Q2

REPORT INFORMATION
  Report Type: Other
  Country: US (occurrence: US)
  Receive Date: 20140424
  Receipt Date: 20140619
  Transmission Date: 20141212
  Serious: Yes (Hospitalization, Other)
  Sender: FDA-Public Use
  Company Number: US-GSKPPD-2014GSK000191

PATIENT
  Age: 60 Year
  Sex: Female
  Weight: 126.67 kg

DRUGS (11)
  1. AVANDIA [Suspect]
     Indication: DIABETES MELLITUS
     Dosage: DATE OF AVANDIA USE COULD NOT BE CONFIRMED IN RECORDS REVIEWED
     Route: 048
  2. AVANDAMET [Suspect]
     Indication: DIABETES MELLITUS
     Dosage: DATE OF AVANDAMET USE COULD NOT BE CONFIRMED IN RECORDS REVIEWED.
     Route: 048
  3. LASIX [Suspect]
  4. MEVACOR [Concomitant]
     Route: 048
  5. LOPRESSOR [Concomitant]
     Route: 048
  6. ASPIRIN [Concomitant]
     Route: 048
  7. PLAVIX [Concomitant]
     Route: 048
  8. PLAVIX [Concomitant]
     Route: 048
  9. MAXZIDE [Concomitant]
  10. IMDUR [Concomitant]
  11. TIAZAC [Concomitant]

REACTIONS (1)
  - Myocardial infarction [Recovered/Resolved]
